FAERS Safety Report 10713443 (Version 1)
Quarter: 2015Q1

REPORT INFORMATION
  Report Type: Spontaneous
  Country: US (occurrence: US)
  Receive Date: 20150115
  Receipt Date: 20150115
  Transmission Date: 20150721
  Serious: Yes (Death)
  Sender: FDA-Public Use
  Company Number: US-SIGMA-TAU US-2015STPI000006

PATIENT
  Age: 31 Year
  Sex: Male

DRUGS (2)
  1. MATULANE [Suspect]
     Active Substance: PROCARBAZINE HYDROCHLORIDE
     Dosage: 100 MG, QD
     Route: 048
     Dates: start: 201409
  2. MATULANE [Suspect]
     Active Substance: PROCARBAZINE HYDROCHLORIDE
     Indication: BRAIN NEOPLASM
     Dosage: 150 MG, QD
     Route: 048
     Dates: start: 20140911

REACTIONS (1)
  - Death [Fatal]

NARRATIVE: CASE EVENT DATE: 20141227
